FAERS Safety Report 4722271-4 (Version None)
Quarter: 2005Q3

REPORT INFORMATION
  Report Type: 
  Country: None (occurrence: None)
  Receive Date: 20050720
  Receipt Date: 20050709
  Transmission Date: 20060218
  Serious: Yes (Hospitalization)
  Sender: FDA-Public Use
  Company Number: 2005098755

PATIENT
  Age: 43 Year
  Sex: Male

DRUGS (3)
  1. ZYVOX [Suspect]
     Indication: ENTEROCOCCAL INFECTION
     Dosage: 1200 MG (600 MG, BID) INTRAVENOUS
     Route: 042
     Dates: start: 20050708
  2. ZYVOX [Suspect]
     Indication: STAPHYLOCOCCAL INFECTION
     Dosage: 1200 MG (600 MG, BID) INTRAVENOUS
     Route: 042
     Dates: start: 20050708
  3. EFFEXOR [Suspect]
     Indication: ILL-DEFINED DISORDER
     Dosage: 300 MG (300 MG , DAILY)

REACTIONS (3)
  - DRUG WITHDRAWAL SYNDROME [None]
  - ENTEROCOCCAL INFECTION [None]
  - STAPHYLOCOCCAL INFECTION [None]
